FAERS Safety Report 9684354 (Version 3)
Quarter: 2013Q4

REPORT INFORMATION
  Report Type: Report from Study
  Country: RO (occurrence: RO)
  Receive Date: 20131112
  Receipt Date: 20131120
  Transmission Date: 20140711
  Serious: Yes (Life-Threatening, Hospitalization)
  Sender: FDA-Public Use
  Company Number: RO-ROCHE-1302713

PATIENT
  Age: 68 Year
  Sex: Female
  Weight: 38 kg

DRUGS (8)
  1. RITUXIMAB [Suspect]
     Indication: NON-HODGKIN^S LYMPHOMA
     Dosage: DAY 1 OF FIRST INDUCTION?566 MG
     Route: 042
     Dates: start: 20130724
  2. RHUPH20/RITUXIMAB [Suspect]
     Indication: NON-HODGKIN^S LYMPHOMA
     Dosage: LAST DATE PRIOR TO EVENT WAS 18/SEP/2013
     Route: 058
     Dates: start: 20130821, end: 20131030
  3. RHUPH20/RITUXIMAB [Suspect]
     Route: 058
     Dates: start: 20130918
  4. ACETAMINOFEN [Concomitant]
     Route: 065
     Dates: start: 20130724, end: 20130724
  5. ACETAMINOFEN [Concomitant]
     Route: 065
     Dates: start: 20130808, end: 20130808
  6. CHLORPHENAMINE [Concomitant]
     Route: 065
     Dates: start: 20130724, end: 20130724
  7. OMEPRAZOL [Concomitant]
     Route: 065
     Dates: start: 20130726, end: 20130730
  8. OMEPRAZOL [Concomitant]
     Route: 065
     Dates: start: 20130823, end: 20130827

REACTIONS (1)
  - Sepsis [Not Recovered/Not Resolved]
